FAERS Safety Report 10178059 (Version 1)
Quarter: 2014Q2

REPORT INFORMATION
  Report Type: Spontaneous
  Country: DE (occurrence: DE)
  Receive Date: 20140518
  Receipt Date: 20140518
  Transmission Date: 20141212
  Serious: Yes (Death, Other)
  Sender: FDA-Public Use
  Company Number: PHHY2014DE058670

PATIENT
  Age: 51 Year
  Sex: Female
  Weight: 50 kg

DRUGS (1)
  1. VOLTAREN [Suspect]
     Dosage: 10 DF, DAILY

REACTIONS (8)
  - Pneumonia [Fatal]
  - Respiratory failure [Fatal]
  - Dependence [Unknown]
  - Psychotic disorder [Unknown]
  - Delusion [Unknown]
  - Schizophrenia, paranoid type [Unknown]
  - Drug abuse [Unknown]
  - Refusal of treatment by patient [None]
